FAERS Safety Report 7472254-9 (Version None)
Quarter: 2011Q2

REPORT INFORMATION
  Report Type: 
  Country: None (occurrence: None)
  Receive Date: 20110502
  Receipt Date: 20110419
  Transmission Date: 20111010
  Serious: Yes (Other)
  Sender: FDA-Public Use
  Company Number: DSJ-2011-07846

PATIENT
  Age: 78 Year
  Sex: Female

DRUGS (6)
  1. ACETYL SALICYLIC ACID USP BAT [Concomitant]
  2. FLOWER REMEDIES [Concomitant]
  3. BENICAR HCT [Suspect]
     Indication: HYPERTENSION
     Dosage: 20/12.5 MG (1 IN 1 D) PER ORAL; 40/12.5 MG (1 IN 1 D), PER ORAL
     Route: 048
     Dates: start: 20100501, end: 20100601
  4. BENICAR HCT [Suspect]
     Indication: HYPERTENSION
     Dosage: 20/12.5 MG (1 IN 1 D) PER ORAL; 40/12.5 MG (1 IN 1 D), PER ORAL
     Route: 048
     Dates: start: 20100601
  5. BROMAZEPAM [Concomitant]
  6. CILOSTAZOL [Concomitant]

REACTIONS (8)
  - DRUG INEFFECTIVE [None]
  - BLOOD PRESSURE SYSTOLIC INCREASED [None]
  - URINARY TRACT INFECTION [None]
  - PYREXIA [None]
  - CONSTIPATION [None]
  - HYPOTENSION [None]
  - CONDITION AGGRAVATED [None]
  - ANXIETY [None]
